FAERS Safety Report 17026237 (Version 1)
Quarter: 2019Q4

REPORT INFORMATION
  Report Type: Spontaneous
  Country: US (occurrence: US)
  Receive Date: 20191009
  Receipt Date: 20191009
  Transmission Date: 20200122
  Serious: No
  Sender: FDA-Public Use
  Company Number: None

PATIENT
  Age: 69 Year
  Sex: Female

DRUGS (1)
  1. OCALIVA [Suspect]
     Active Substance: OBETICHOLIC ACID
     Indication: PRIMARY BILIARY CHOLANGITIS
     Dosage: ?          OTHER DOSE:1 T;?
     Route: 048
     Dates: start: 20190207

REACTIONS (3)
  - Pruritus [None]
  - Somnolence [None]
  - Unevaluable event [None]
